FAERS Safety Report 7122751-0 (Version None)
Quarter: 2010Q4

REPORT INFORMATION
  Report Type: 
  Country: None (occurrence: None)
  Receive Date: 20101124
  Receipt Date: 20101110
  Transmission Date: 20110411
  Serious: Yes (Other)
  Sender: FDA-Public Use
  Company Number: US-JNJCH-2010025620

PATIENT
  Sex: Male

DRUGS (1)
  1. VISINE EYE DROPS [Suspect]
     Indication: SEASONAL ALLERGY
     Dosage: TEXT:SMALL AMOUNTS
     Route: 047

REACTIONS (6)
  - BLINDNESS [None]
  - IMPAIRED WORK ABILITY [None]
  - INJURY CORNEAL [None]
  - OFF LABEL USE [None]
  - PAIN [None]
  - PRODUCT LABEL ISSUE [None]
